FAERS Safety Report 4597439-0 (Version None)
Quarter: 2005Q1

REPORT INFORMATION
  Report Type: 
  Country: None (occurrence: None)
  Receive Date: 20050303
  Receipt Date: 20050218
  Transmission Date: 20050727
  Serious: Yes (Hospitalization)
  Sender: FDA-Public Use
  Company Number: US-GLAXOSMITHKLINE-A0546203A

PATIENT
  Age: 81 Year
  Sex: Male
  Weight: 82 kg

DRUGS (5)
  1. ECOTRIN ADULT LOW STRENGTH TABLETS [Suspect]
     Route: 048
     Dates: start: 19980101, end: 20050216
  2. ECOTRIN REGULAR STRENGTH TABLETS [Suspect]
     Dates: start: 20050212, end: 20050213
  3. COUMADIN [Suspect]
     Indication: ANTICOAGULANT THERAPY
     Route: 048
  4. LASIX [Concomitant]
     Route: 048
  5. MICRO-K [Concomitant]
     Route: 048

REACTIONS (8)
  - BLOOD PRESSURE INCREASED [None]
  - COUGH [None]
  - DIZZINESS [None]
  - HEART RATE INCREASED [None]
  - HEART RATE IRREGULAR [None]
  - HYPERTHYROIDISM [None]
  - HYPOTHYROIDISM [None]
  - PYREXIA [None]
